FAERS Safety Report 4965265-6 (Version None)
Quarter: 2006Q1

REPORT INFORMATION
  Report Type: 
  Country: None (occurrence: None)
  Receive Date: 20060201
  Receipt Date: 20051228
  Transmission Date: 20060701
  Serious: No
  Sender: FDA-Public Use
  Company Number: 2005PV006347

PATIENT
  Age: 48 Year
  Sex: Female
  Weight: 122.4712 kg

DRUGS (8)
  1. BYETTA [Suspect]
     Indication: DIABETES MELLITUS NON-INSULIN-DEPENDENT
     Dosage: 10 MCG;BID;SC; 5 MCG;BID;SC
     Route: 058
     Dates: start: 20050701, end: 20050801
  2. BYETTA [Suspect]
     Indication: DIABETES MELLITUS NON-INSULIN-DEPENDENT
     Dosage: 10 MCG;BID;SC; 5 MCG;BID;SC
     Route: 058
     Dates: start: 20050801
  3. DIOVANE [Concomitant]
  4. ZOLOFT [Concomitant]
  5. CRESTOR [Concomitant]
  6. METFORMIN [Concomitant]
  7. AVANDIA [Concomitant]
  8. ASPIRIN [Concomitant]

REACTIONS (1)
  - ALOPECIA [None]
